FAERS Safety Report 8583819 (Version 2)
Quarter: 2013Q3

REPORT INFORMATION
  Report Type: Spontaneous
  Country: GB (occurrence: GB)
  Receive Date: 20120529
  Receipt Date: 20130925
  Transmission Date: 20140515
  Serious: Yes (Hospitalization, Other)
  Sender: FDA-Public Use
  Company Number: GB-ROCHE-1071073

PATIENT
  Age: 60 Year
  Sex: Female

DRUGS (8)
  1. MABTHERA [Suspect]
     Indication: RHEUMATOID ARTHRITIS
     Route: 042
     Dates: start: 200805
  2. ACETYLSALICYLIC ACID [Concomitant]
     Indication: CARDIAC DISORDER
     Dosage: REPORTED AS ASPRIN
     Route: 048
  3. CLOPIDOGREL [Concomitant]
     Indication: CARDIAC DISORDER
     Route: 048
  4. LANSOPRAZOLE [Concomitant]
     Route: 048
  5. RAMIPRIL [Concomitant]
     Indication: CARDIAC DISORDER
     Route: 048
  6. SIMVASTATIN [Concomitant]
     Indication: CARDIAC DISORDER
     Route: 048
  7. SULFASALAZINE [Concomitant]
     Indication: RHEUMATOID ARTHRITIS
     Route: 048
  8. CARVEDILOL [Concomitant]
     Route: 065

REACTIONS (3)
  - Acute coronary syndrome [Recovering/Resolving]
  - Electrocardiogram abnormal [Recovering/Resolving]
  - Acute myocardial infarction [Unknown]
